FAERS Safety Report 5975746-4 (Version None)
Quarter: 2008Q4

REPORT INFORMATION
  Report Type: 
  Country: None (occurrence: None)
  Receive Date: 20081202
  Receipt Date: 20081121
  Transmission Date: 20090506
  Serious: Yes (Hospitalization, Other)
  Sender: FDA-Public Use
  Company Number: US-MERCK-0805USA02816

PATIENT
  Age: 54 Year
  Sex: Female

DRUGS (1)
  1. FOSAMAX [Suspect]
     Route: 048
     Dates: start: 20010101, end: 20060401

REACTIONS (11)
  - ABSCESS NECK [None]
  - BRONCHITIS [None]
  - COLON CANCER STAGE I [None]
  - HYPERPLASIA [None]
  - IMPAIRED HEALING [None]
  - LARYNGEAL DISORDER [None]
  - LOWER LIMB FRACTURE [None]
  - OSTEOMYELITIS [None]
  - OSTEONECROSIS [None]
  - PHARYNGEAL INFLAMMATION [None]
  - RESORPTION BONE INCREASED [None]
